FAERS Safety Report 7893486-1 (Version None)
Quarter: 2011Q4

REPORT INFORMATION
  Report Type: 
  Country: None (occurrence: None)
  Receive Date: 20111104
  Receipt Date: 20111027
  Transmission Date: 20120403
  Serious: Yes (Other)
  Sender: FDA-Public Use
  Company Number: PL-B.I. PHARMACEUTICALS,INC./RIDGEFIELD-2011-AP-00594AP

PATIENT
  Sex: Female
  Weight: 80 kg

DRUGS (1)
  1. PRADAXA [Suspect]
     Indication: OSTEOARTHRITIS
     Dosage: 220 MG
     Route: 048
     Dates: start: 20111005, end: 20111012

REACTIONS (3)
  - NAUSEA [None]
  - ABDOMINAL PAIN [None]
  - VOMITING [None]
